FAERS Safety Report 13419050 (Version 1)
Quarter: 2017Q2

REPORT INFORMATION
  Report Type: Spontaneous
  Country: FR (occurrence: FR)
  Receive Date: 20170407
  Receipt Date: 20170407
  Transmission Date: 20170830
  Serious: Yes (Death, Hospitalization, Other)
  Sender: FDA-Public Use
  Company Number: FR-AMGEN-FRASP2017051752

PATIENT
  Age: 62 Year
  Sex: Male
  Weight: 74.97 kg

DRUGS (6)
  1. CARFILZOMIB [Concomitant]
     Active Substance: CARFILZOMIB
     Dosage: 50 MG, UNK (D8 AND D9)
     Route: 042
     Dates: start: 20170202
  2. DEXAMETHASONE. [Suspect]
     Active Substance: DEXAMETHASONE
     Indication: PLASMA CELL MYELOMA
     Dosage: 40 MG, UNK
     Route: 065
     Dates: start: 201612
  3. REVLIMID [Suspect]
     Active Substance: LENALIDOMIDE
     Indication: PLASMA CELL MYELOMA
     Dosage: 10 MG, UNK
     Route: 065
     Dates: end: 20170110
  4. CARFILZOMIB [Concomitant]
     Active Substance: CARFILZOMIB
     Indication: PLASMA CELL MYELOMA
     Dosage: UNK
     Route: 065
     Dates: start: 201612
  5. CARFILZOMIB [Concomitant]
     Active Substance: CARFILZOMIB
     Dosage: 50 MG, UNK (D1 AND D2)
     Route: 042
     Dates: start: 20170126, end: 2017
  6. FILGRASTIM [Suspect]
     Active Substance: FILGRASTIM
     Indication: PRODUCT USED FOR UNKNOWN INDICATION
     Dosage: UNK
     Route: 065
     Dates: start: 201612

REACTIONS (17)
  - Bradycardia [Unknown]
  - Hypothermia [Unknown]
  - Productive cough [Unknown]
  - Asthenia [Unknown]
  - Systemic inflammatory response syndrome [Unknown]
  - Thrombocytopenia [Unknown]
  - Arrhythmia supraventricular [Unknown]
  - Infection masked [Unknown]
  - Death [Fatal]
  - Chills [Unknown]
  - Hypotension [Unknown]
  - Leukopenia [Unknown]
  - Pyrexia [Recovered/Resolved]
  - Anaemia [Unknown]
  - Malaise [Unknown]
  - Hypercalcaemia [Unknown]
  - Sinoatrial block [Recovered/Resolved]

NARRATIVE: CASE EVENT DATE: 201701
